FAERS Safety Report 6883235-8 (Version None)
Quarter: 2010Q3

REPORT INFORMATION
  Report Type: 
  Country: None (occurrence: None)
  Receive Date: 20100727
  Receipt Date: 20071024
  Transmission Date: 20110219
  Serious: Yes (Hospitalization, Other)
  Sender: FDA-Public Use
  Company Number: US-PFIZER INC-2006118178

PATIENT
  Sex: Female
  Weight: 98 kg

DRUGS (9)
  1. CELEBREX [Suspect]
     Indication: PAIN
     Route: 048
     Dates: start: 19990101
  2. VIOXX [Suspect]
     Indication: VIITH NERVE PARALYSIS
     Route: 048
     Dates: start: 20011020
  3. LIPITOR [Concomitant]
     Indication: BLOOD CHOLESTEROL INCREASED
     Dates: start: 20011020
  4. HYDROCODONE BITARTRATE [Concomitant]
     Indication: PAIN
     Dates: start: 20011008, end: 20030920
  5. MAXALT [Concomitant]
     Indication: MIGRAINE
     Dates: start: 20010928, end: 20030525
  6. NEURONTIN [Concomitant]
     Indication: CONVULSION
     Dates: start: 20011008, end: 20021221
  7. PREDNISONE [Concomitant]
     Indication: ASTHMA
     Dates: start: 20011228, end: 20030702
  8. TOPAMAX [Concomitant]
     Indication: MIGRAINE
     Dates: start: 20020119
  9. TOPAMAX [Concomitant]
     Indication: CONVULSION

REACTIONS (2)
  - MYOCARDIAL INFARCTION [None]
  - PULMONARY EMBOLISM [None]
